FAERS Safety Report 7210460-9 (Version None)
Quarter: 2011Q1

REPORT INFORMATION
  Report Type: 
  Country: None (occurrence: None)
  Receive Date: 20110105
  Receipt Date: 20101228
  Transmission Date: 20110831
  Serious: Yes (Hospitalization)
  Sender: FDA-Public Use
  Company Number: JP-JNJFOC-20100404645

PATIENT
  Age: 48 Year
  Sex: Female
  Weight: 40 kg

DRUGS (16)
  1. REMICADE [Suspect]
     Dosage: 2 TOTAL DOSES
     Route: 042
  2. MUCOSTA [Concomitant]
     Indication: PSORIASIS
  3. REMICADE [Suspect]
     Route: 042
  4. RHEUMATREX [Suspect]
     Route: 048
  5. REMICADE [Suspect]
     Dosage: 2 TOTAL DOSES
     Route: 042
  6. ALFAROL [Concomitant]
     Indication: PROPHYLAXIS
     Dosage: DOSE 0.5 RG
     Route: 048
  7. RHEUMATREX [Suspect]
     Indication: PSORIASIS
     Dosage: NOT SUSPECT BEGINNING THIS DATE
     Route: 048
  8. LOXONIN [Concomitant]
     Indication: PSORIASIS
     Route: 048
  9. REMICADE [Suspect]
     Indication: PSORIATIC ARTHROPATHY
     Route: 042
  10. REMICADE [Suspect]
     Route: 042
  11. PREDNISOLONE [Suspect]
     Dosage: NOT SUSPECT BEGINNING THIS DATE
     Route: 048
  12. REMICADE [Suspect]
     Route: 042
  13. PREDNISOLONE [Suspect]
     Indication: PSORIASIS
     Route: 048
  14. RHEUMATREX [Suspect]
     Route: 048
  15. ANTEBATE [Concomitant]
     Indication: PSORIASIS
  16. FOLIAMIN [Concomitant]
     Indication: PROPHYLAXIS
     Route: 048

REACTIONS (2)
  - FURUNCLE [None]
  - HERPES ZOSTER [None]
